FAERS Safety Report 9831801 (Version 1)
Quarter: 2014Q1

REPORT INFORMATION
  Report Type: Spontaneous
  Country: BR (occurrence: BR)
  Receive Date: 20140121
  Receipt Date: 20140121
  Transmission Date: 20141002
  Serious: Yes (Other)
  Sender: FDA-Public Use
  Company Number: BR-ELI_LILLY_AND_COMPANY-BR201401004836

PATIENT
  Sex: Male

DRUGS (10)
  1. FLUOXETINE HYDROCHLORIDE [Suspect]
     Indication: PANIC DISORDER
     Dosage: UNK, UNKNOWN
     Route: 065
  2. TRANXILENE [Suspect]
     Indication: PANIC DISORDER
     Dosage: UNK, UNKNOWN
     Route: 065
  3. LORAX [Suspect]
     Indication: PANIC DISORDER
     Dosage: UNK, UNKNOWN
     Route: 065
  4. ESCITALOPRAM [Suspect]
     Indication: PANIC DISORDER
     Dosage: UNK, UNKNOWN
     Route: 065
  5. AMITRIPTILINA [Suspect]
     Indication: PANIC DISORDER
     Dosage: UNK, UNKNOWN
     Route: 065
  6. VENLAFAXINE [Suspect]
     Indication: PANIC DISORDER
     Dosage: UNK, UNKNOWN
     Route: 065
  7. ANAFRANIL [Suspect]
     Indication: PANIC DISORDER
     Dosage: UNK, UNKNOWN
     Route: 065
  8. TOFRANIL [Suspect]
     Indication: PANIC DISORDER
     Dosage: UNK, UNKNOWN
     Route: 065
  9. RISPERIDONA [Suspect]
     Indication: PANIC DISORDER
     Dosage: UNK, UNKNOWN
     Route: 065
  10. RIVOTRIL [Suspect]
     Indication: PANIC DISORDER
     Dosage: 2 MG, BID
     Route: 065

REACTIONS (4)
  - Panic disorder [Not Recovered/Not Resolved]
  - Drug dependence [Unknown]
  - Visual impairment [Unknown]
  - Asthenia [Unknown]
